FAERS Safety Report 8399022-8 (Version None)
Quarter: 2012Q2

REPORT INFORMATION
  Report Type: 
  Country: None (occurrence: None)
  Receive Date: 20120531
  Receipt Date: 20120529
  Transmission Date: 20120825
  Serious: Yes (Hospitalization, Other)
  Sender: FDA-Public Use
  Company Number: US-ELI_LILLY_AND_COMPANY-US201104007268

PATIENT
  Age: 69 Year
  Sex: Male
  Weight: 79.819 kg

DRUGS (2)
  1. CIALIS [Suspect]
     Dosage: UNK, PRN
     Dates: start: 20110906
  2. CIALIS [Suspect]
     Indication: ERECTILE DYSFUNCTION
     Dosage: 5 MG, PRN
     Route: 048

REACTIONS (2)
  - WRONG TECHNIQUE IN DRUG USAGE PROCESS [None]
  - SUBDURAL HAEMATOMA [None]
